FAERS Safety Report 9587758 (Version 1)
Quarter: 2013Q4

REPORT INFORMATION
  Report Type: Spontaneous
  Country: US (occurrence: US)
  Receive Date: 20131003
  Receipt Date: 20131003
  Transmission Date: 20140711
  Serious: No
  Sender: FDA-Public Use
  Company Number: US-COVIDIEN/TYCO HEALTHCARE/MALLINCKRODT-T201304197

PATIENT
  Age: 51 Year
  Sex: Female
  Weight: 85.26 kg

DRUGS (2)
  1. EXALGO EXTENDED RELEASE [Suspect]
     Indication: PAIN
     Dosage: 16 MG, BID
     Route: 048
     Dates: start: 201212, end: 2013
  2. DILAUDID [Concomitant]
     Indication: PAIN
     Dosage: 8 MG TID-QID
     Route: 048
     Dates: start: 201209

REACTIONS (1)
  - Migraine [Recovered/Resolved]
